FAERS Safety Report 6120704-2 (Version None)
Quarter: 2009Q1

REPORT INFORMATION
  Report Type: 
  Country: None (occurrence: None)
  Receive Date: 20090312
  Receipt Date: 20090302
  Transmission Date: 20090719
  Serious: No
  Sender: FDA-Public Use
  Company Number: 2008-187729-NL

PATIENT
  Age: 28 Year
  Sex: Female

DRUGS (3)
  1. ETONOGESTREL           (BATCH #: 778320/848057) [Suspect]
     Indication: CONTRACEPTION
     Dosage: DF
     Dates: start: 20060821, end: 20081217
  2. FLUTICASONE PROPIONATE [Concomitant]
  3. DESLORATADINE [Concomitant]

REACTIONS (5)
  - GINGIVAL BLEEDING [None]
  - GINGIVAL DISORDER [None]
  - GINGIVAL RECESSION [None]
  - GINGIVAL SWELLING [None]
  - WEIGHT INCREASED [None]
